FAERS Safety Report 25581000 (Version 1)
Quarter: 2025Q3

REPORT INFORMATION
  Report Type: Spontaneous
  Country: US (occurrence: US)
  Receive Date: 20250718
  Receipt Date: 20250718
  Transmission Date: 20251021
  Serious: Yes (Death, Other)
  Sender: AMGEN
  Company Number: US-AMGEN-USASP2025137502

PATIENT

DRUGS (2)
  1. PREDNISONE [Suspect]
     Active Substance: PREDNISONE
     Indication: Immunosuppressant drug therapy
     Dosage: UNK UNK, QD
     Route: 065
  2. SIROLIMUS [Concomitant]
     Active Substance: SIROLIMUS
     Indication: Immunosuppressant drug therapy
     Route: 065

REACTIONS (13)
  - Respiratory failure [Fatal]
  - Neoplasm malignant [Fatal]
  - Nervous system disorder [Fatal]
  - Renal failure [Fatal]
  - Death [Fatal]
  - Renal impairment [Unknown]
  - Lung transplant rejection [Unknown]
  - Complications of transplanted lung [Unknown]
  - Bronchiolitis obliterans syndrome [Unknown]
  - Pulmonary toxicity [Unknown]
  - Adverse event [Unknown]
  - Impaired healing [Unknown]
  - Oedema [Unknown]
